FAERS Safety Report 4859930-9 (Version None)
Quarter: 2005Q4

REPORT INFORMATION
  Report Type: 
  Country: None (occurrence: None)
  Receive Date: 20051219
  Receipt Date: 20051209
  Transmission Date: 20060501
  Serious: Yes (Other)
  Sender: FDA-Public Use
  Company Number: CA-BRISTOL-MYERS SQUIBB COMPANY-13217690

PATIENT
  Age: 74 Year
  Sex: Male

DRUGS (10)
  1. TEQUIN [Suspect]
  2. ENTERIC COATED ACETYLSALICYLIC ACID [Concomitant]
  3. ALTACE [Concomitant]
  4. COMBIVENT [Concomitant]
  5. DESIPRAMINE HCL [Concomitant]
  6. HUMALOG [Concomitant]
     Dosage: DOSE UNIT = UNITS
  7. NPH INSULIN [Concomitant]
  8. LACTULOSE [Concomitant]
  9. METOPROLOL [Concomitant]
  10. SYNTHROID [Concomitant]

REACTIONS (2)
  - CREATININE RENAL CLEARANCE [None]
  - HYPERGLYCAEMIA [None]
